FAERS Safety Report 4880448-1 (Version None)
Quarter: 2005Q4

REPORT INFORMATION
  Report Type: 
  Country: None (occurrence: None)
  Receive Date: 20051223
  Receipt Date: 20051130
  Transmission Date: 20060501
  Serious: No
  Sender: FDA-Public Use
  Company Number: 05P-163-0318223-00

PATIENT
  Age: 50 Year
  Sex: Male
  Weight: 57.1532 kg

DRUGS (5)
  1. HUMIRA                        (ADALIMUMAB) [Suspect]
     Indication: CROHN'S DISEASE
     Dosage: 40 MG, 1 IN 1 WK, SUBCUTANEOUS
     Route: 058
     Dates: start: 20051109
  2. PREDNISONE [Concomitant]
  3. PENTASA [Concomitant]
  4. BUDESONIDE [Concomitant]
  5. CIPROFLOXACIN HYDROCHLORIDE [Concomitant]

REACTIONS (1)
  - SKIN PAPILLOMA [None]
